FAERS Safety Report 9557454 (Version 2)
Quarter: 2013Q4

REPORT INFORMATION
  Report Type: Spontaneous
  Country: US (occurrence: US)
  Receive Date: 20130926
  Receipt Date: 20131002
  Transmission Date: 20140711
  Serious: No
  Sender: FDA-Public Use
  Company Number: US-TEVA-434414USA

PATIENT
  Sex: Male

DRUGS (2)
  1. AZILECT [Suspect]
     Indication: PARKINSON^S DISEASE
     Dosage: 1 MG, FREQUENCY NOT PROVIDED
     Dates: start: 201308
  2. STALEVO [Concomitant]

REACTIONS (2)
  - Tremor [Not Recovered/Not Resolved]
  - Drug effect decreased [Unknown]
